FAERS Safety Report 5924752-4 (Version None)
Quarter: 2008Q4

REPORT INFORMATION
  Report Type: 
  Country: None (occurrence: None)
  Receive Date: 20081017
  Receipt Date: 20081003
  Transmission Date: 20090506
  Serious: Yes (Hospitalization, Other)
  Sender: FDA-Public Use
  Company Number: SPV1-2008-02119

PATIENT
  Age: 45 Year
  Sex: Female
  Weight: 55.8 kg

DRUGS (2)
  1. PENTASA [Suspect]
     Indication: COLITIS ULCERATIVE
     Dosage: 2000 MG, 1X/DAY:QD, ORAL; 4000 MG, 1X/DAY:QD, ORAL
     Route: 048
     Dates: start: 20080201, end: 20080701
  2. PENTASA [Suspect]
     Indication: COLITIS ULCERATIVE
     Dosage: 2000 MG, 1X/DAY:QD, ORAL; 4000 MG, 1X/DAY:QD, ORAL
     Route: 048
     Dates: start: 20080701, end: 20080801

REACTIONS (3)
  - COLITIS ULCERATIVE [None]
  - DRUG INEFFECTIVE [None]
  - GALLBLADDER OPERATION [None]
